FAERS Safety Report 6814089-3 (Version None)
Quarter: 2010Q3

REPORT INFORMATION
  Report Type: 
  Country: None (occurrence: None)
  Receive Date: 20100702
  Receipt Date: 20090911
  Transmission Date: 20110219
  Serious: No
  Sender: FDA-Public Use
  Company Number: A0806917A

PATIENT
  Age: 83 Year
  Sex: Female

DRUGS (7)
  1. ADVAIR DISKUS 100/50 [Suspect]
     Indication: ASTHMA
     Dosage: 2PUFF TWICE PER DAY
     Route: 055
     Dates: start: 20090827, end: 20090911
  2. METFORMIN HCL [Concomitant]
  3. LOVASTATIN [Concomitant]
  4. PAROXETINE [Concomitant]
  5. DIOVAN [Concomitant]
  6. OMEPRAZOLE [Concomitant]
  7. VITAMINS [Concomitant]

REACTIONS (3)
  - ABDOMINAL DISCOMFORT [None]
  - BLOOD PRESSURE INCREASED [None]
  - DIZZINESS [None]
